FAERS Safety Report 10602490 (Version 2)
Quarter: 2014Q4

REPORT INFORMATION
  Report Type: Spontaneous
  Country: US (occurrence: US)
  Receive Date: 20141124
  Receipt Date: 20141124
  Transmission Date: 20150529
  Serious: Yes (Other)
  Sender: FDA-Public Use
  Company Number: US-SA-2014SA143823

PATIENT
  Age: 67 Year
  Sex: Female

DRUGS (1)
  1. ALLEGRA-D [Suspect]
     Active Substance: FEXOFENADINE\PSEUDOEPHEDRINE
     Indication: HYPERSENSITIVITY
     Route: 048
     Dates: end: 20141017

REACTIONS (6)
  - Cough [Unknown]
  - Drug ineffective [Unknown]
  - Wheezing [Unknown]
  - Diverticulitis [Unknown]
  - Abdominal pain upper [Unknown]
  - Medication residue present [Unknown]
